FAERS Safety Report 5193799-0 (Version None)
Quarter: 2006Q4

REPORT INFORMATION
  Report Type: 
  Country: None (occurrence: None)
  Receive Date: 20061221
  Receipt Date: 20061212
  Transmission Date: 20070319
  Serious: Yes (Death)
  Sender: FDA-Public Use
  Company Number: MEDI-0005213

PATIENT
  Sex: Male
  Weight: 89.8122 kg

DRUGS (3)
  1. ETHYOL [Suspect]
  2. RADIATION THERAPY [Concomitant]
  3. UNKNOWN CHEMOTHERAPY DRUG [Concomitant]

REACTIONS (2)
  - MALIGNANT NEOPLASM PROGRESSION [None]
  - METASTASIS [None]
